FAERS Safety Report 8096986-7 (Version None)
Quarter: 2012Q1

REPORT INFORMATION
  Report Type: 
  Country: None (occurrence: None)
  Receive Date: 20120129
  Receipt Date: 20111206
  Transmission Date: 20120608
  Serious: No
  Sender: FDA-Public Use
  Company Number: US-ABBOTT-11P-163-0880792-00

PATIENT
  Sex: Female
  Weight: 63.56 kg

DRUGS (7)
  1. SYNTHROID [Concomitant]
     Indication: HYPOTHYROIDISM
  2. ZOLOFT [Concomitant]
     Indication: PRODUCT USED FOR UNKNOWN INDICATION
     Dosage: TAKEN WITH ANASTROZOLE
  3. HUMIRA [Suspect]
     Indication: PSORIATIC ARTHROPATHY
     Route: 058
     Dates: start: 20111129
  4. LOSARTAN POTASSIUM [Concomitant]
     Indication: HYPERTENSION
     Dosage: 100/25 MG IN THE MORNING
  5. HUMIRA [Suspect]
     Indication: RHEUMATOID ARTHRITIS
     Route: 058
     Dates: start: 20100101, end: 20111001
  6. HUMIRA [Suspect]
     Indication: PSORIASIS
  7. ANASTROZOLE [Concomitant]
     Indication: BREAST CANCER

REACTIONS (6)
  - WHEEZING [None]
  - ARTHRITIS [None]
  - DRUG EFFECT DECREASED [None]
  - COUGH [None]
  - OROPHARYNGEAL PAIN [None]
  - BRONCHITIS [None]
